FAERS Safety Report 7952251-7 (Version None)
Quarter: 2011Q4

REPORT INFORMATION
  Report Type: 
  Country: None (occurrence: None)
  Receive Date: 20111130
  Receipt Date: 20111130
  Transmission Date: 20120403
  Serious: No
  Sender: FDA-Public Use
  Company Number: None

PATIENT
  Age: 57 Year
  Sex: Male
  Weight: 74.3 kg

DRUGS (2)
  1. CEFTRIAXONE [Suspect]
     Indication: PNEUMONIA
     Dosage: 1 GM EVERY DAY IV
     Route: 042
     Dates: start: 20111126, end: 20111128
  2. CEFTRIAXONE [Suspect]
     Indication: PAIN
     Dosage: 1 GM EVERY DAY IV
     Route: 042
     Dates: start: 20111126, end: 20111128

REACTIONS (1)
  - HAEMOLYTIC ANAEMIA [None]
